FAERS Safety Report 11351080 (Version 1)
Quarter: 2015Q3

REPORT INFORMATION
  Report Type: Spontaneous
  Country: US (occurrence: US)
  Receive Date: 20150807
  Receipt Date: 20150807
  Transmission Date: 20151125
  Serious: No
  Sender: FDA-Public Use
  Company Number: US-JNJFOC-20150618678

PATIENT
  Age: 79 Year
  Sex: Female
  Weight: 48.08 kg

DRUGS (18)
  1. WOMENS ROGAINE UNSCENTED [Suspect]
     Active Substance: MINOXIDIL
     Indication: ALOPECIA
     Dosage: HALF A CAPFUL
     Route: 061
  2. FORTEO [Concomitant]
     Active Substance: TERIPARATIDE
     Indication: PROPHYLAXIS
     Dosage: 1 MONTH AGO
     Route: 065
  3. MORPHINE SULFATE. [Concomitant]
     Active Substance: MORPHINE SULFATE
     Indication: ANALGESIC THERAPY
     Dosage: 1 TO 2 TIMES DAILY AT NIGHT, 3 WEEKS AGO
     Route: 065
  4. ALPHA LIPOIC [Concomitant]
     Indication: NEUROPATHY PERIPHERAL
     Dosage: 4 MONTHS AGO
     Route: 065
  5. BENAZEPRIL [Concomitant]
     Active Substance: BENAZEPRIL HYDROCHLORIDE
     Indication: HYPERTENSION
     Dosage: 1X DAILY
     Route: 065
     Dates: start: 2002
  6. ZOLPIDEM [Concomitant]
     Active Substance: ZOLPIDEM\ZOLPIDEM TARTRATE
     Indication: SLEEP DISORDER THERAPY
     Dosage: 2 TIMES DAILY AT NIGHT
     Route: 065
     Dates: start: 2005
  7. TURMERIC [Concomitant]
     Active Substance: TURMERIC
     Indication: INFLAMMATION
     Route: 065
     Dates: start: 2013
  8. LORAZEPAM. [Concomitant]
     Active Substance: LORAZEPAM
     Indication: ANXIETY
     Dosage: VARIES
     Route: 065
     Dates: start: 2002
  9. MAGNESIUM [Concomitant]
     Active Substance: MAGNESIUM
     Indication: CONSTIPATION PROPHYLAXIS
     Route: 065
     Dates: start: 2013
  10. SYNTHROID [Concomitant]
     Active Substance: LEVOTHYROXINE SODIUM
     Indication: HYPOTHYROIDISM
     Route: 065
     Dates: start: 1996
  11. WOMENS ROGAINE UNSCENTED [Suspect]
     Active Substance: MINOXIDIL
     Route: 061
  12. MULTIVITAMINS WITH MINERALS [Concomitant]
     Active Substance: MINERALS\VITAMINS
     Indication: PROPHYLAXIS
     Dosage: FOR 5 YEARS
     Route: 065
  13. VITAMIN D3 [Concomitant]
     Active Substance: CHOLECALCIFEROL
     Indication: PROPHYLAXIS
     Dosage: 1X DAILY
     Route: 065
     Dates: start: 2013
  14. VITAMIN C [Concomitant]
     Active Substance: ASCORBIC ACID
     Indication: ROUTINE HEALTH MAINTENANCE
     Dosage: MANY YEARS
     Route: 065
  15. HERBAL NOS [Concomitant]
     Active Substance: HERBALS
     Indication: GENERAL PHYSICAL CONDITION
     Dosage: 1 YEAR AGO
     Route: 065
  16. FLAXSEED [Concomitant]
     Active Substance: FLAX SEED
     Indication: INFLAMMATION
     Dosage: DAILY
     Route: 065
     Dates: start: 2013
  17. BIOTIN [Concomitant]
     Active Substance: BIOTIN
     Indication: GENERAL PHYSICAL CONDITION
     Dosage: 1 OR 2 YEARS
     Route: 065
  18. MELATONIN [Concomitant]
     Active Substance: MELATONIN
     Indication: SLEEP DISORDER THERAPY
     Dosage: VARIES, 1 YEAR
     Route: 065

REACTIONS (2)
  - Alopecia [Not Recovered/Not Resolved]
  - Hair disorder [Not Recovered/Not Resolved]
